FAERS Safety Report 4497672-2 (Version None)
Quarter: 2004Q4

REPORT INFORMATION
  Report Type: 
  Country: None (occurrence: None)
  Receive Date: 20041108
  Receipt Date: 20041026
  Transmission Date: 20050328
  Serious: Yes (Disabling)
  Sender: FDA-Public Use
  Company Number: GB-JNJFOC-20040605788

PATIENT
  Sex: Female
  Weight: 63.5 kg

DRUGS (1)
  1. ORTHO EVRA [Suspect]
     Indication: CONTRACEPTION
     Route: 062
     Dates: start: 20040416, end: 20040624

REACTIONS (9)
  - ABDOMINAL DISTENSION [None]
  - BREAST TENDERNESS [None]
  - CONSTIPATION [None]
  - FLATULENCE [None]
  - FLUID RETENTION [None]
  - HYPERTROPHY BREAST [None]
  - JOINT SWELLING [None]
  - MUSCLE CRAMP [None]
  - WEIGHT INCREASED [None]
